FAERS Safety Report 9988022 (Version 2)
Quarter: 2014Q1

REPORT INFORMATION
  Report Type: Spontaneous
  Country: DK (occurrence: DK)
  Receive Date: 20140307
  Receipt Date: 20140307
  Transmission Date: 20141002
  Serious: Yes (Hospitalization)
  Sender: FDA-Public Use
  Company Number: DK-ABBVIE-13P-044-1105675-00

PATIENT
  Age: 44 Year
  Sex: Female
  Weight: 70 kg

DRUGS (6)
  1. HUMIRA [Suspect]
     Indication: PSORIATIC ARTHROPATHY
     Dates: start: 20100429
  2. HUMIRA [Suspect]
     Dates: start: 20130326
  3. METHOTREXATE [Concomitant]
     Indication: PRODUCT USED FOR UNKNOWN INDICATION
     Dates: start: 20090106
  4. FOLIC ACID [Concomitant]
  5. CORODIL [Concomitant]
  6. AMITRIPTYLINE [Concomitant]

REACTIONS (4)
  - Facial paresis [Unknown]
  - Aphasia [Unknown]
  - Cerebral infarction [Recovered/Resolved]
  - Paraesthesia [Unknown]
